FAERS Safety Report 9278916 (Version 1)
Quarter: 2013Q2

REPORT INFORMATION
  Report Type: Spontaneous
  Country: US (occurrence: None)
  Receive Date: 20130506
  Receipt Date: 20130506
  Transmission Date: 20140414
  Serious: Yes (Hospitalization)
  Sender: FDA-Public Use
  Company Number: None

PATIENT
  Sex: 0

DRUGS (1)
  1. MELOXICAM [Suspect]
     Route: 048
     Dates: end: 20121111

REACTIONS (3)
  - Upper gastrointestinal haemorrhage [None]
  - Haematemesis [None]
  - International normalised ratio decreased [None]
